FAERS Safety Report 23890345 (Version 1)
Quarter: 2024Q2

REPORT INFORMATION
  Report Type: Report from Study
  Country: US (occurrence: US)
  Receive Date: 20240523
  Receipt Date: 20240523
  Transmission Date: 20240716
  Serious: Yes (Hospitalization)
  Sender: FDA-Public Use
  Company Number: US-ABBVIE-5767020

PATIENT
  Age: 50 Year
  Sex: Female

DRUGS (1)
  1. HUMIRA [Suspect]
     Active Substance: ADALIMUMAB
     Indication: Hidradenitis
     Dosage: CITRATE FREE
     Route: 058
     Dates: start: 20230804, end: 20240212

REACTIONS (5)
  - Intestinal obstruction [Recovered/Resolved]
  - Hidradenitis [Not Recovered/Not Resolved]
  - Intestinal obstruction [Not Recovered/Not Resolved]
  - Pathogen resistance [Not Recovered/Not Resolved]
  - Bacterial vaginosis [Not Recovered/Not Resolved]

NARRATIVE: CASE EVENT DATE: 20231210
